FAERS Safety Report 9467721 (Version 1)
Quarter: 2013Q3

REPORT INFORMATION
  Report Type: Report from Study
  Country: CA (occurrence: CA)
  Receive Date: 20130821
  Receipt Date: 20130821
  Transmission Date: 20140515
  Serious: Yes (Hospitalization, Other)
  Sender: FDA-Public Use
  Company Number: CA-JNJFOC-20130807801

PATIENT
  Age: 38 Year
  Sex: Male
  Weight: 114.1 kg

DRUGS (1)
  1. REMICADE [Suspect]
     Indication: COLITIS ULCERATIVE
     Route: 042

REACTIONS (3)
  - Pancreatitis acute [Recovered/Resolved]
  - Psoriasis [Unknown]
  - Colitis ulcerative [Unknown]
